FAERS Safety Report 5211620-9 (Version None)
Quarter: 2007Q1

REPORT INFORMATION
  Report Type: 
  Country: None (occurrence: None)
  Receive Date: 20070116
  Receipt Date: 20070116
  Transmission Date: 20070707
  Serious: Yes (Other)
  Sender: FDA-Public Use
  Company Number: None

PATIENT
  Age: 33 Year
  Sex: Female
  Weight: 55.7924 kg

DRUGS (1)
  1. FLUOCINOLONE/CETAPHIL    513         ECKERD PHARMACY [Suspect]
     Indication: SKIN DISORDER
     Dosage: TWICE DAILY     EPIDURAL
     Route: 008

REACTIONS (2)
  - ANXIETY [None]
  - DYSPNOEA [None]
